FAERS Safety Report 8033428-1 (Version None)
Quarter: 2012Q1

REPORT INFORMATION
  Report Type: 
  Country: None (occurrence: None)
  Receive Date: 20120110
  Receipt Date: 20111230
  Transmission Date: 20120608
  Serious: Yes (Other)
  Sender: FDA-Public Use
  Company Number: CA-ROCHE-1028735

PATIENT
  Sex: Female
  Weight: 96.112 kg

DRUGS (6)
  1. VENTOLIN [Concomitant]
  2. XOLAIR [Suspect]
     Indication: ASTHMA
     Route: 058
     Dates: start: 20100219
  3. XOLAIR [Suspect]
     Route: 058
     Dates: start: 20100318, end: 20100908
  4. SINGULAIR [Concomitant]
  5. ADVAIR DISKUS 100/50 [Concomitant]
  6. XOLAIR [Suspect]
     Route: 058
     Dates: start: 20100305

REACTIONS (5)
  - INFLUENZA [None]
  - INJECTION SITE PAIN [None]
  - RASH GENERALISED [None]
  - URTICARIA [None]
  - URINARY TRACT INFECTION [None]
